FAERS Safety Report 4751883-7 (Version None)
Quarter: 2005Q3

REPORT INFORMATION
  Report Type: 
  Country: None (occurrence: None)
  Receive Date: 20050822
  Receipt Date: 20050510
  Transmission Date: 20060218
  Serious: No
  Sender: FDA-Public Use
  Company Number: PHEH2005US05342

PATIENT
  Age: 47 Year
  Sex: Female

DRUGS (6)
  1. ZELNORM [Suspect]
     Indication: IRRITABLE BOWEL SYNDROME
     Dosage: BID, ORAL
     Route: 048
     Dates: start: 20041001, end: 20050201
  2. FLORINEF [Concomitant]
  3. MYSOLINE ^ASTRA^ (PRIMIDONE) [Concomitant]
  4. PREVACID [Concomitant]
  5. ACCUTANE [Concomitant]
  6. LACTULOSE [Concomitant]

REACTIONS (5)
  - DIZZINESS [None]
  - DRUG INTERACTION [None]
  - HYPOTENSION [None]
  - ORTHOSTATIC HYPOTENSION [None]
  - PALLOR [None]
